FAERS Safety Report 15606216 (Version 1)
Quarter: 2018Q4

REPORT INFORMATION
  Report Type: Spontaneous
  Country: US (occurrence: US)
  Receive Date: 20181106
  Receipt Date: 20181106
  Transmission Date: 20190205
  Serious: Yes (Hospitalization, Other)
  Sender: FDA-Public Use
  Company Number: None

PATIENT
  Age: 57 Year
  Sex: Male
  Weight: 97.98 kg

DRUGS (1)
  1. SEVOFLURANE. [Suspect]
     Active Substance: SEVOFLURANE
     Indication: SURGERY
     Dates: start: 20180730, end: 20180730

REACTIONS (7)
  - Pyrexia [None]
  - Diffuse alveolar damage [None]
  - Haemorrhage [None]
  - Anaemia [None]
  - Pulmonary alveolar haemorrhage [None]
  - Vasculitis [None]
  - Anaesthetic complication pulmonary [None]

NARRATIVE: CASE EVENT DATE: 20180730
